FAERS Safety Report 7918218-X (Version None)
Quarter: 2011Q4

REPORT INFORMATION
  Report Type: 
  Country: None (occurrence: None)
  Receive Date: 20111114
  Receipt Date: 20111101
  Transmission Date: 20120403
  Serious: Yes (Other)
  Sender: FDA-Public Use
  Company Number: 1000025156

PATIENT
  Age: 61 Year
  Sex: Female

DRUGS (6)
  1. VIIBRYD [Suspect]
     Indication: DEPRESSION
     Dosage: 40 MG (40 MG, 1 IN 1 D),ORAL;
     Route: 048
     Dates: start: 20111019, end: 20111029
  2. SPIRIVA (TIOTROPIUM BROMIDE)(TIOTROPIUM BROMIDE) [Concomitant]
  3. WELLBUTRIN (BUPROPION HYDROCHLORIDE)(BUPROPION HYDROCHLORIDE) [Concomitant]
  4. SYMBICORT(BUDESONIDE W/FORMOTEROL FUMARATE)(BUDESONIDE W/FORMOTEROL FU [Concomitant]
  5. VIIBRYD [Suspect]
     Indication: DEPRESSION
     Dosage: 10 MG (10 MG, 1 IN 1 D),ORAL; 20 MG (20 MG, 1 IN 1 D),ORAL
     Route: 048
     Dates: start: 20111012, end: 20111018
  6. VIIBRYD [Suspect]
     Indication: DEPRESSION
     Dosage: 10 MG (10 MG, 1 IN 1 D),ORAL; 20 MG (20 MG, 1 IN 1 D),ORAL
     Route: 048
     Dates: start: 20111005, end: 20111011

REACTIONS (4)
  - AGITATION [None]
  - ANGER [None]
  - SUICIDAL IDEATION [None]
  - DEPRESSION [None]
